FAERS Safety Report 9654325 (Version 1)
Quarter: 2013Q4

REPORT INFORMATION
  Report Type: Spontaneous
  Country: US (occurrence: None)
  Receive Date: 20131028
  Receipt Date: 20131028
  Transmission Date: 20140711
  Serious: Yes (Death)
  Sender: FDA-Public Use
  Company Number: B0935396A

PATIENT
  Sex: 0

DRUGS (3)
  1. MELPHALAN [Suspect]
     Indication: AMYLOIDOSIS
     Route: 048
  2. LENALIDOMIDE [Suspect]
     Indication: AMYLOIDOSIS
     Route: 048
  3. DEXAMETHASONE [Suspect]
     Indication: AMYLOIDOSIS
     Route: 048

REACTIONS (3)
  - Cardiac arrest [None]
  - Hyponatraemia [None]
  - Convulsion [None]
